FAERS Safety Report 25269357 (Version 1)
Quarter: 2025Q2

REPORT INFORMATION
  Report Type: Spontaneous
  Country: CN (occurrence: CN)
  Receive Date: 20250505
  Receipt Date: 20250505
  Transmission Date: 20250717
  Serious: Yes (Other)
  Sender: JAZZ
  Company Number: CN-NJLY-XML-2025LURBI00075

PATIENT
  Age: 20 Year
  Sex: Female

DRUGS (4)
  1. ZEPZELCA [Suspect]
     Active Substance: LURBINECTEDIN
     Indication: Bone sarcoma
     Route: 042
     Dates: start: 20250322
  2. LEVOFLOXACIN [Concomitant]
     Active Substance: LEVOFLOXACIN
     Indication: Infection
  3. KABIVEN [Concomitant]
     Active Substance: ALANINE\ARGININE\ASPARTIC ACID\CALCIUM CHLORIDE\DEXTROSE MONOHYDRATE\GLUTAMIC ACID\GLYCINE\HISTIDINE
     Indication: Nutritional supplementation
     Dates: start: 20250317
  4. SURUFATINIB [Concomitant]
     Active Substance: SURUFATINIB
     Indication: Product used for unknown indication
     Dates: start: 20250317

REACTIONS (17)
  - Rhabdomyolysis [Unknown]
  - Acute kidney injury [Unknown]
  - Myelosuppression [Unknown]
  - Multiple organ dysfunction syndrome [Unknown]
  - Cardiac failure [Unknown]
  - Myocardial injury [Unknown]
  - Cholecystitis infective [Unknown]
  - Hypokalaemia [Unknown]
  - Infection [Unknown]
  - Protein total decreased [Unknown]
  - Blood albumin decreased [Unknown]
  - Jaundice [Unknown]
  - Asthenia [Unknown]
  - Coagulopathy [Unknown]
  - Listless [Unknown]
  - General physical health deterioration [Unknown]
  - Intentional product use issue [Unknown]

NARRATIVE: CASE EVENT DATE: 20250101
